FAERS Safety Report 14725783 (Version 3)
Quarter: 2018Q2

REPORT INFORMATION
  Report Type: Spontaneous
  Country: US (occurrence: US)
  Receive Date: 20180406
  Receipt Date: 20180420
  Transmission Date: 20180711
  Serious: No
  Sender: FDA-Public Use
  Company Number: US-BIOGEN-2018BI00546795

PATIENT
  Age: 56 Year
  Sex: Female

DRUGS (1)
  1. TYSABRI [Suspect]
     Active Substance: NATALIZUMAB
     Indication: MULTIPLE SCLEROSIS
     Dosage: INFUSED FOR OVER 1 HOUR
     Route: 065
     Dates: start: 20171218

REACTIONS (9)
  - Weight fluctuation [Unknown]
  - Drug dose omission [Recovered/Resolved]
  - Intentional product misuse [Unknown]
  - Stress [Unknown]
  - Confusional state [Unknown]
  - Gait disturbance [Unknown]
  - Fatigue [Unknown]
  - Motor dysfunction [Unknown]
  - Mobility decreased [Unknown]

NARRATIVE: CASE EVENT DATE: 201802
